FAERS Safety Report 22229242 (Version 1)
Quarter: 2023Q2

REPORT INFORMATION
  Report Type: Spontaneous
  Country: IT (occurrence: IT)
  Receive Date: 20230419
  Receipt Date: 20230419
  Transmission Date: 20230722
  Serious: Yes (Other)
  Sender: FDA-Public Use
  Company Number: None

PATIENT
  Age: 80 Year
  Sex: Female

DRUGS (1)
  1. ONTRUZANT [Suspect]
     Active Substance: TRASTUZUMAB-DTTB
     Indication: Gastric cancer
     Dosage: 1ST DRUG INFUSED IN THE SESSION, NOT PREVIOUSLY ADMINISTERED DRUGS IN THE 3/4 CT SESSION, 480 MG IN
     Route: 042
     Dates: start: 20230403, end: 20230403

REACTIONS (1)
  - Infusion related reaction [Recovered/Resolved]

NARRATIVE: CASE EVENT DATE: 20230403
